FAERS Safety Report 8927097 (Version 1)
Quarter: 2012Q4

REPORT INFORMATION
  Report Type: 
  Country: US (occurrence: US)
  Receive Date: 20121127
  Receipt Date: 20121127
  Transmission Date: 20130627
  Serious: No
  Sender: FDA-Public Use
  Company Number: US-MYLANLABS-2012S1017419

PATIENT
  Age: 34 Year
  Sex: Female
  Weight: 63.5 kg

DRUGS (4)
  1. MONTELUKAST SODIUM [Suspect]
     Indication: SEASONAL ALLERGY
     Route: 048
     Dates: start: 20120816, end: 20120820
  2. MONTELUKAST SODIUM [Suspect]
     Indication: MULTIPLE ALLERGIES
     Route: 048
     Dates: start: 20120816, end: 20120820
  3. MONTELUKAST SODIUM [Suspect]
     Indication: ASTHMA
     Route: 048
     Dates: start: 20120816, end: 20120820
  4. ZYRTEC [Concomitant]
     Route: 048

REACTIONS (4)
  - Drug ineffective [Recovered/Resolved]
  - Chest discomfort [Recovered/Resolved]
  - Dyspnoea [Recovered/Resolved]
  - Pruritus [Recovered/Resolved]
